FAERS Safety Report 16418791 (Version 1)
Quarter: 2019Q2

REPORT INFORMATION
  Report Type: Spontaneous
  Country: GB (occurrence: GB)
  Receive Date: 20190612
  Receipt Date: 20190612
  Transmission Date: 20190711
  Serious: Yes (Hospitalization, Other)
  Sender: FDA-Public Use
  Company Number: GB-AUROBINDO-AUR-APL-2019-032600

PATIENT

DRUGS (5)
  1. CARBOCISTEINE [Concomitant]
     Active Substance: CARBOCYSTEINE
     Indication: PRODUCT USED FOR UNKNOWN INDICATION
     Dosage: 1500 MILLIGRAM, DAILY
     Route: 065
  2. FOSTAIR [Concomitant]
     Active Substance: BECLOMETHASONE\FORMOTEROL
     Indication: PRODUCT USED FOR UNKNOWN INDICATION
     Dosage: 4 DOSAGE FORM, DAILY,200MICROGRAMS/DOSE / 6MICROGRAMS/DOSE
     Route: 055
  3. AZITHROMYCIN FILM-COATED TABLETS [Suspect]
     Active Substance: AZITHROMYCIN ANHYDROUS
     Indication: BRONCHIECTASIS
     Dosage: 750 MILLIGRAM, EVERY WEEK,MONDAY, WEDNESDAY, FRIDAY
     Route: 048
     Dates: start: 20181002, end: 20181026
  4. AVAMYS [Concomitant]
     Active Substance: FLUTICASONE FUROATE
     Indication: PRODUCT USED FOR UNKNOWN INDICATION
     Dosage: 55 MICROGRAM, DAILY,IN EACH NOSTRIL
     Route: 045
  5. SALBUTAMOL [Concomitant]
     Active Substance: ALBUTEROL
     Indication: PRODUCT USED FOR UNKNOWN INDICATION
     Dosage: UNK, AS NECESSARY,UNK,1-2 PUFFS 4 TIMES A DAY
     Route: 055

REACTIONS (3)
  - Delirium [Not Recovered/Not Resolved]
  - Agitation [Unknown]
  - Confusional state [Unknown]
